FAERS Safety Report 7672881-X (Version None)
Quarter: 2011Q3

REPORT INFORMATION
  Report Type: 
  Country: None (occurrence: None)
  Receive Date: 20110809
  Receipt Date: 20110728
  Transmission Date: 20111222
  Serious: Yes (Hospitalization, Other)
  Sender: FDA-Public Use
  Company Number: US-AMGEN-USASP2011038494

PATIENT
  Sex: Male

DRUGS (1)
  1. ENBREL [Suspect]
     Indication: PSORIATIC ARTHROPATHY
     Dosage: UNK

REACTIONS (5)
  - PNEUMOTHORAX [None]
  - POOR PERIPHERAL CIRCULATION [None]
  - ARTHRALGIA [None]
  - CORONARY ARTERY INSUFFICIENCY [None]
  - SQUAMOUS CELL CARCINOMA [None]
